FAERS Safety Report 8546017-7 (Version None)
Quarter: 2012Q3

REPORT INFORMATION
  Report Type: 
  Country: None (occurrence: None)
  Receive Date: 20120727
  Receipt Date: 20111130
  Transmission Date: 20120928
  Serious: No
  Sender: FDA-Public Use
  Company Number: US-ASTRAZENECA-2011SE73173

PATIENT
  Age: 49 Year
  Sex: Female

DRUGS (1)
  1. SEROQUEL [Suspect]
     Indication: CRANIOCEREBRAL INJURY
     Route: 048

REACTIONS (8)
  - CONDITION AGGRAVATED [None]
  - WRONG TECHNIQUE IN DRUG USAGE PROCESS [None]
  - WITHDRAWAL SYNDROME [None]
  - OFF LABEL USE [None]
  - CONFUSIONAL STATE [None]
  - FEAR [None]
  - ANXIETY [None]
  - DRUG DOSE OMISSION [None]
